FAERS Safety Report 24141714 (Version 1)
Quarter: 2024Q3

REPORT INFORMATION
  Report Type: Spontaneous
  Country: US (occurrence: US)
  Receive Date: 20240726
  Receipt Date: 20240726
  Transmission Date: 20241017
  Serious: Yes (Other)
  Sender: PFIZER
  Company Number: US-PFIZER INC-PV202400097294

PATIENT
  Age: 80 Year
  Sex: Female
  Weight: 81.64 kg

DRUGS (1)
  1. IBRANCE [Suspect]
     Active Substance: PALBOCICLIB
     Indication: Breast cancer female
     Dosage: TAKE 1 TAB DAILY FOR 21 DAYS THEN 7 DAYS OFF
     Route: 048
     Dates: end: 20240725

REACTIONS (1)
  - Leukopenia [Unknown]
